FAERS Safety Report 9025948 (Version 1)
Quarter: 2012Q4

REPORT INFORMATION
  Report Type: Spontaneous
  Country: US (occurrence: None)
  Receive Date: 20121214
  Receipt Date: 20121214
  Transmission Date: 20130627
  Serious: Yes (Hospitalization)
  Sender: FDA-Public Use
  Company Number: None

PATIENT
  Sex: Female
  Weight: 14.2 kg

DRUGS (8)
  1. CYCLOPHOSPHAMIDE [Suspect]
  2. CARBOPLATIN [Suspect]
  3. ETOPOSIDE (VP-16) [Suspect]
  4. G-CSF [Suspect]
  5. FAMOTIDINE [Concomitant]
  6. AMITRIPTYLINE [Concomitant]
  7. AMLODIPINE [Concomitant]
  8. BACTRIM [Concomitant]

REACTIONS (18)
  - Febrile neutropenia [None]
  - Decreased appetite [None]
  - Malnutrition [None]
  - Pulmonary oedema [None]
  - Hypoxia [None]
  - Refusal of treatment by relative [None]
  - Pulmonary hypertension [None]
  - Bradycardia [None]
  - Cardiac arrest [None]
  - Right ventricular dysfunction [None]
  - Dilatation ventricular [None]
  - Jugular vein thrombosis [None]
  - Deep vein thrombosis [None]
  - Subclavian vein thrombosis [None]
  - Axillary vein thrombosis [None]
  - Pleural effusion [None]
  - Pelvic abscess [None]
  - Hypertension [None]
